FAERS Safety Report 17198303 (Version 1)
Quarter: 2019Q4

REPORT INFORMATION
  Report Type: Report from Study
  Country: ES (occurrence: ES)
  Receive Date: 20191225
  Receipt Date: 20191225
  Transmission Date: 20200122
  Serious: Yes (Hospitalization)
  Sender: FDA-Public Use
  Company Number: ES-TEVA-2019-ES-1157113

PATIENT
  Age: 56 Year
  Sex: Male

DRUGS (6)
  1. ENTECAVIR (8043A) [Concomitant]
     Dosage: 1 MG PER DAY
     Route: 048
     Dates: start: 2013
  2. FLUDARABINA FOSFATO (3698FO) [Suspect]
     Active Substance: FLUDARABINE PHOSPHATE
     Indication: MYELODYSPLASTIC SYNDROME
     Route: 065
     Dates: start: 2009, end: 2009
  3. AZATIOPRINA (45A) [Concomitant]
     Active Substance: AZATHIOPRINE
     Indication: AUTOIMMUNE HEPATITIS
     Dosage: 100 MG PER DAY
     Route: 048
     Dates: start: 20100128
  4. OMEPRAZOL (2141A) [Concomitant]
     Active Substance: OMEPRAZOLE
     Dosage: 20 MG PER DAY
     Route: 048
     Dates: start: 20100128
  5. BUSULFANO (76A) [Interacting]
     Active Substance: BUSULFAN
     Indication: MYELODYSPLASTIC SYNDROME
     Route: 065
     Dates: start: 2009, end: 2009
  6. BUDESONIDA (2291A) [Concomitant]
     Active Substance: BUDESONIDE
     Indication: AUTOIMMUNE HEPATITIS
     Dosage: 9 MG PER DAY
     Route: 048
     Dates: start: 20120515

REACTIONS (2)
  - Congestive cardiomyopathy [Not Recovered/Not Resolved]
  - Drug interaction [Unknown]

NARRATIVE: CASE EVENT DATE: 201709
